FAERS Safety Report 5632220-2 (Version None)
Quarter: 2008Q1

REPORT INFORMATION
  Report Type: 
  Country: None (occurrence: None)
  Receive Date: 20080220
  Receipt Date: 20080208
  Transmission Date: 20080703
  Serious: Yes (Other)
  Sender: FDA-Public Use
  Company Number: FR-ROCHE-546568

PATIENT
  Age: 15 Year
  Sex: Male

DRUGS (1)
  1. TAMIFLU [Suspect]
     Indication: INFLUENZA
     Route: 065

REACTIONS (4)
  - CONFUSIONAL STATE [None]
  - PERSONALITY DISORDER [None]
  - SOMNOLENCE [None]
  - VERTIGO [None]
